FAERS Safety Report 19477502 (Version 1)
Quarter: 2021Q2

REPORT INFORMATION
  Report Type: Spontaneous
  Country: US (occurrence: US)
  Receive Date: 20210630
  Receipt Date: 20210630
  Transmission Date: 20210717
  Serious: No
  Sender: FDA-Public Use
  Company Number: None

PATIENT
  Age: 68 Year
  Sex: Male
  Weight: 68 kg

DRUGS (1)
  1. PEMBROLIZUMAB (PEMBROLIZUMAB 50MG/VIL INJ) [Suspect]
     Active Substance: PEMBROLIZUMAB
     Indication: OPTIC NEURITIS
     Route: 042
     Dates: start: 20200722, end: 20210423

REACTIONS (3)
  - Vision blurred [None]
  - Papilloedema [None]
  - Optic neuritis [None]

NARRATIVE: CASE EVENT DATE: 20210413
